FAERS Safety Report 23632976 (Version 2)
Quarter: 2024Q4

REPORT INFORMATION
  Report Type: Spontaneous
  Country: US (occurrence: US)
  Receive Date: 20240314
  Receipt Date: 20241016
  Transmission Date: 20250115
  Serious: Yes (Other)
  Sender: SANOFI AVENTIS
  Company Number: US-SA-SAC20240314000050

PATIENT
  Age: 78 Year
  Sex: Female
  Weight: 52 kg

DRUGS (6)
  1. DUPIXENT [Suspect]
     Active Substance: DUPILUMAB
     Indication: Dermatitis atopic
     Dosage: 300 MG, QOW
     Route: 058
     Dates: start: 202110
  2. COVID-19 VACCINE NOS [Suspect]
     Active Substance: COVID-19 VACCINE
     Indication: Prophylaxis
  3. LATANOPROST [Concomitant]
     Active Substance: LATANOPROST
     Dosage: OPTH SOL 2.5ML/0.005%
  4. IRBESARTAN [Concomitant]
     Active Substance: IRBESARTAN
  5. SYNTHROID [Concomitant]
     Active Substance: LEVOTHYROXINE SODIUM
  6. REPATHA [Concomitant]
     Active Substance: EVOLOCUMAB

REACTIONS (5)
  - Pneumonia [Not Recovered/Not Resolved]
  - Alopecia [Recovered/Resolved]
  - Blood pressure increased [Recovering/Resolving]
  - Skin exfoliation [Recovering/Resolving]
  - Pruritus [Recovering/Resolving]

NARRATIVE: CASE EVENT DATE: 20240818
